FAERS Safety Report 7278859-2 (Version None)
Quarter: 2011Q1

REPORT INFORMATION
  Report Type: 
  Country: None (occurrence: None)
  Receive Date: 20110207
  Receipt Date: 20101019
  Transmission Date: 20110831
  Serious: No
  Sender: FDA-Public Use
  Company Number: US-BAYER-201022741BCC

PATIENT
  Sex: Female
  Weight: 95.455 kg

DRUGS (11)
  1. ACTOS [Concomitant]
  2. ALEVE [Suspect]
     Indication: ARTHRITIS
     Dosage: 220 MG, BID
     Route: 048
     Dates: start: 20100801
  3. CALCIUM [CALCIUM] [Concomitant]
  4. LISINOPRIL [Concomitant]
  5. PROVIGIL [Concomitant]
  6. FISH OIL [Concomitant]
  7. METFORMIN HCL [Concomitant]
  8. ALEVE [Suspect]
     Dosage: 440 MG, BID
     Route: 048
     Dates: start: 20100915, end: 20101010
  9. INSULIN [INSULIN] [Concomitant]
  10. MULTIVITAMIN PREPARATION + MINERAL SUPPLEMENT [Concomitant]
  11. ASPIRIN [Concomitant]

REACTIONS (5)
  - DRY MOUTH [None]
  - LIP DRY [None]
  - PRURITUS [None]
  - LIP EXFOLIATION [None]
  - RASH PAPULAR [None]
